FAERS Safety Report 7306586-1 (Version None)
Quarter: 2011Q1

REPORT INFORMATION
  Report Type: 
  Country: None (occurrence: None)
  Receive Date: 20110222
  Receipt Date: 20110207
  Transmission Date: 20110831
  Serious: No
  Sender: FDA-Public Use
  Company Number: IT-CTI_01309_2011

PATIENT
  Sex: Male

DRUGS (4)
  1. GIASION (CEFDITOREN) COMPRESSE RIVESTITE [Suspect]
     Indication: OROPHARYNGEAL PAIN
     Route: 048
     Dates: start: 20100712, end: 20100712
  2. FLUIMUCIL (ACETYLCYSTEINE) [Concomitant]
  3. FLUARIX (INFLUENZA VACCINE) [Suspect]
     Indication: INFLUENZA IMMUNISATION
     Dosage: DF
     Route: 030
     Dates: start: 20100712, end: 20100712
  4. SPIRIVA [Concomitant]
     Route: 055

REACTIONS (4)
  - SYNCOPE [None]
  - DYSPNOEA [None]
  - PRESYNCOPE [None]
  - URTICARIA [None]
